FAERS Safety Report 5940627-9 (Version None)
Quarter: 2008Q4

REPORT INFORMATION
  Report Type: 
  Country: None (occurrence: None)
  Receive Date: 20081103
  Receipt Date: 20081103
  Transmission Date: 20090506
  Serious: Yes (Disabling, Other)
  Sender: FDA-Public Use
  Company Number: None

PATIENT
  Age: 44 Year
  Sex: Female
  Weight: 65.7716 kg

DRUGS (2)
  1. LYRICA [Suspect]
     Indication: FIBROMYALGIA
     Dosage: 150MGS 2X DAILY MOUTH
     Route: 048
  2. LYRICA [Suspect]
     Indication: NERVE INJURY
     Dosage: 150MGS 2X DAILY MOUTH
     Route: 048

REACTIONS (4)
  - DELUSION [None]
  - HALLUCINATION [None]
  - PARANOIA [None]
  - SCHIZOPHRENIA, PARANOID TYPE [None]
